FAERS Safety Report 6897662-6 (Version None)
Quarter: 2010Q3

REPORT INFORMATION
  Report Type: 
  Country: None (occurrence: None)
  Receive Date: 20100802
  Receipt Date: 20070625
  Transmission Date: 20110219
  Serious: No
  Sender: FDA-Public Use
  Company Number: US-PFIZER INC-2007046572

PATIENT
  Sex: Male
  Weight: 117.9 kg

DRUGS (8)
  1. LYRICA [Suspect]
     Indication: NEURALGIA
     Dates: start: 20060101
  2. ZOLOFT [Concomitant]
  3. ADDERALL 10 [Concomitant]
  4. REGLAN [Concomitant]
  5. ACIPHEX [Concomitant]
  6. CARAFATE [Concomitant]
  7. ALLEGRA [Concomitant]
  8. ALL OTHER THERAPEUTIC PRODUCTS [Concomitant]

REACTIONS (1)
  - NEURALGIA [None]
